FAERS Safety Report 8616754-4 (Version None)
Quarter: 2012Q3

REPORT INFORMATION
  Report Type: 
  Country: None (occurrence: None)
  Receive Date: 20120823
  Receipt Date: 20120820
  Transmission Date: 20120928
  Serious: Yes (Death, Hospitalization)
  Sender: FDA-Public Use
  Company Number: FR-009507513-1204FRA00126

PATIENT

DRUGS (9)
  1. AMBISOME [Suspect]
     Indication: SYSTEMIC CANDIDA
     Dosage: 250 MG, QD
     Dates: start: 20120408, end: 20120422
  2. MAGNESIUM SULFATE [Concomitant]
     Indication: ATRIAL FIBRILLATION
     Dosage: UNK
     Dates: start: 20120306
  3. TARGOCID [Concomitant]
     Indication: SEPTIC SHOCK
     Dosage: 400 MG, BID
     Dates: start: 20120418
  4. NEXIUM [Concomitant]
     Indication: PROPHYLAXIS AGAINST GASTROINTESTINAL ULCER
     Dosage: UNK
  5. CANCIDAS [Suspect]
     Dosage: 70 MG, QD
     Dates: start: 20120322, end: 20120408
  6. TIENAM IV [Suspect]
     Indication: SEPTIC SHOCK
     Dosage: 500 MG, Q6H
     Dates: start: 20120418, end: 20120422
  7. CANCIDAS [Suspect]
     Indication: SYSTEMIC CANDIDA
     Dosage: 70 MG, QD
     Dates: start: 20120420, end: 20120422
  8. NOREPINEPHRINE [Concomitant]
     Indication: SHOCK
     Dosage: UNK
     Dates: start: 20120306
  9. FOSFOMYCIN [Concomitant]
     Indication: SEPTIC SHOCK
     Dosage: 4 G, Q8H
     Dates: start: 20120418

REACTIONS (2)
  - DEATH [None]
  - CYTOLYTIC HEPATITIS [None]
